FAERS Safety Report 5346336-1 (Version None)
Quarter: 2007Q2

REPORT INFORMATION
  Report Type: 
  Country: None (occurrence: None)
  Receive Date: 20070430
  Receipt Date: 20070320
  Transmission Date: 20071010
  Serious: No
  Sender: FDA-Public Use
  Company Number: 012730

PATIENT
  Age: 44 Year
  Sex: Male

DRUGS (35)
  1. PRIALT [Suspect]
     Indication: PAIN
     Dosage: SEE IMAGE
     Route: 037
     Dates: end: 20050503
  2. PRIALT [Suspect]
     Indication: PAIN
     Dosage: SEE IMAGE
     Route: 037
     Dates: start: 20051020, end: 20051104
  3. PRIALT [Suspect]
     Indication: PAIN
     Dosage: SEE IMAGE
     Route: 037
     Dates: start: 20051104, end: 20051130
  4. PRIALT [Suspect]
     Indication: PAIN
     Dosage: SEE IMAGE
     Route: 037
     Dates: start: 20060503, end: 20060815
  5. PRIALT [Suspect]
     Indication: PAIN
     Dosage: SEE IMAGE
     Route: 037
     Dates: start: 20060815, end: 20061205
  6. PRIALT [Suspect]
     Indication: PAIN
     Dosage: SEE IMAGE
     Route: 037
     Dates: start: 20070205, end: 20070209
  7. PRIALT [Suspect]
     Indication: PAIN
     Dosage: SEE IMAGE
     Route: 037
     Dates: start: 20051130
  8. PRIALT [Suspect]
     Indication: PAIN
     Dosage: SEE IMAGE
     Route: 037
     Dates: start: 20061205
  9. PRIALT [Suspect]
     Indication: PAIN
     Dosage: SEE IMAGE
     Route: 037
     Dates: start: 20070209
  10. HYDROMORPHONE HCL [Suspect]
     Indication: NEURALGIA
     Dosage: SEE IMAGE
     Route: 037
     Dates: end: 20051104
  11. HYDROMORPHONE HCL [Suspect]
     Indication: NEURALGIA
     Dosage: SEE IMAGE
     Route: 037
     Dates: start: 20051104, end: 20051130
  12. HYDROMORPHONE HCL [Suspect]
     Indication: NEURALGIA
     Dosage: SEE IMAGE
     Route: 037
     Dates: start: 20051130, end: 20051205
  13. HYDROMORPHONE HCL [Suspect]
     Indication: NEURALGIA
     Dosage: SEE IMAGE
     Route: 037
     Dates: start: 20051205, end: 20060503
  14. HYDROMORPHONE HCL [Suspect]
     Indication: NEURALGIA
     Dosage: SEE IMAGE
     Route: 037
     Dates: start: 20060503, end: 20060815
  15. HYDROMORPHONE HCL [Suspect]
     Indication: NEURALGIA
     Dosage: SEE IMAGE
     Route: 037
     Dates: start: 20060815, end: 20070205
  16. FENTANYL [Concomitant]
  17. ULTRAM [Concomitant]
  18. WELLBUTRIN /00700501/ (IBUPROPION) [Concomitant]
  19. CYMBALTA [Concomitant]
  20. HYZAAR [Concomitant]
  21. ALDACTAZIDE [Concomitant]
  22. KLOR-CON [Concomitant]
  23. QUININE SULFATE [Concomitant]
  24. LASIX [Concomitant]
  25. FIORICET [Concomitant]
  26. SALAGEN [Concomitant]
  27. ASPIRIN [Concomitant]
  28. MOBIC [Concomitant]
  29. TYLENOL [Concomitant]
  30. NEXIUM [Concomitant]
  31. AMBIEN [Concomitant]
  32. ATIVAN [Concomitant]
  33. LIDODERM [Concomitant]
  34. TRAZODONE HCL [Concomitant]
  35. ANTIHYPERTENSIVES [Concomitant]

REACTIONS (15)
  - ARTHRALGIA [None]
  - BLOOD CREATINE PHOSPHOKINASE INCREASED [None]
  - BLOOD CREATININE INCREASED [None]
  - BLOOD UREA INCREASED [None]
  - BONE PAIN [None]
  - CHROMATURIA [None]
  - FALL [None]
  - HEADACHE [None]
  - MYALGIA [None]
  - NAUSEA [None]
  - OEDEMA PERIPHERAL [None]
  - PAIN [None]
  - ROAD TRAFFIC ACCIDENT [None]
  - TINNITUS [None]
  - WEIGHT INCREASED [None]
